FAERS Safety Report 18635831 (Version 3)
Quarter: 2021Q1

REPORT INFORMATION
  Report Type: Spontaneous
  Country: IT (occurrence: IT)
  Receive Date: 20201218
  Receipt Date: 20210106
  Transmission Date: 20210419
  Serious: Yes (Death)
  Sender: FDA-Public Use
  Company Number: IT-PFIZER INC-2020499557

PATIENT
  Age: 66 Year
  Sex: Male
  Weight: 86 kg

DRUGS (1)
  1. LINEZOLID. [Suspect]
     Active Substance: LINEZOLID
     Indication: SARS-COV-2 SEPSIS
     Dosage: 1200 MG, ONCE DAILY
     Route: 042
     Dates: start: 20201125, end: 20201130

REACTIONS (2)
  - Rash [Fatal]
  - Off label use [Unknown]

NARRATIVE: CASE EVENT DATE: 20201125
